FAERS Safety Report 6652475-5 (Version None)
Quarter: 2010Q1

REPORT INFORMATION
  Report Type: 
  Country: None (occurrence: None)
  Receive Date: 20100323
  Receipt Date: 20100317
  Transmission Date: 20100710
  Serious: Yes (Hospitalization)
  Sender: FDA-Public Use
  Company Number: 2010SP016397

PATIENT
  Age: 21 Year
  Sex: Male

DRUGS (4)
  1. DESLORATADINE [Suspect]
     Indication: DRUG USE FOR UNKNOWN INDICATION
     Dosage: ;PO
     Route: 048
  2. ZYPREXA [Suspect]
     Indication: DRUG USE FOR UNKNOWN INDICATION
     Dosage: ;PO
     Route: 048
  3. RITALIN [Suspect]
     Indication: PSYCHOMOTOR HYPERACTIVITY
     Dosage: ;PO
     Route: 048
  4. RIVOTRIL (CLONAZEPAM) [Suspect]
     Indication: DRUG USE FOR UNKNOWN INDICATION
     Dosage: ;PO
     Route: 048

REACTIONS (4)
  - ATRIAL TACHYCARDIA [None]
  - BACK PAIN [None]
  - PULMONARY EMBOLISM [None]
  - RHABDOMYOLYSIS [None]
